FAERS Safety Report 6423680-8 (Version None)
Quarter: 2009Q4

REPORT INFORMATION
  Report Type: 
  Country: None (occurrence: None)
  Receive Date: 20091030
  Receipt Date: 20091030
  Transmission Date: 20100525
  Serious: No
  Sender: FDA-Public Use
  Company Number: None

PATIENT
  Age: 73 Year
  Sex: Male
  Weight: 84.4 kg

DRUGS (1)
  1. VARENICLINE [Suspect]
     Indication: TOBACCO USER
     Dosage: 1 MG BID PO
     Route: 048
     Dates: start: 20080522, end: 20080707

REACTIONS (2)
  - NAUSEA [None]
  - VOMITING [None]
